FAERS Safety Report 7602584-9 (Version None)
Quarter: 2011Q3

REPORT INFORMATION
  Report Type: 
  Country: None (occurrence: None)
  Receive Date: 20110712
  Receipt Date: 20110706
  Transmission Date: 20111222
  Serious: Yes (Death, Disabling, Other)
  Sender: FDA-Public Use
  Company Number: US-CELGENEUS-163-21880-10102828

PATIENT
  Sex: Female

DRUGS (4)
  1. ACYCLOVIR [Concomitant]
     Dosage: 400 MILLIGRAM
     Route: 065
     Dates: start: 20101021
  2. REVLIMID [Suspect]
     Dosage: 20 MILLIGRAM
     Route: 048
     Dates: start: 20101101, end: 20110401
  3. REVLIMID [Suspect]
     Dosage: 25 MILLIGRAM
     Route: 048
     Dates: start: 20100901
  4. CIPROFLOXACIN HCL [Concomitant]
     Dosage: 500 MILLIGRAM
     Route: 065
     Dates: end: 20101021

REACTIONS (3)
  - DEATH [None]
  - DRUG INTOLERANCE [None]
  - LUNG INFILTRATION [None]
